FAERS Safety Report 20154963 (Version 1)
Quarter: 2021Q4

REPORT INFORMATION
  Report Type: Spontaneous
  Country: US (occurrence: US)
  Receive Date: 20211207
  Receipt Date: 20211207
  Transmission Date: 20220303
  Serious: No
  Sender: FDA-Public Use
  Company Number: US-MICRO LABS LIMITED-ML2021-02392

PATIENT
  Sex: Female
  Weight: 57.6 kg

DRUGS (8)
  1. DORZOLAMIDE\TIMOLOL [Suspect]
     Active Substance: DORZOLAMIDE\TIMOLOL
     Indication: Ocular hypertension
     Dosage: 1 DROP IN EACH EYE TWO TIMES A DAY
     Route: 047
  2. SYSTANE EYEDROPS [Concomitant]
     Active Substance: POLYETHYLENE GLYCOL 400\PROPYLENE GLYCOL
     Dosage: SYSTANE EYE DROPS/MOISTURIZER
  3. ELIQUIS [Concomitant]
     Active Substance: APIXABAN
     Dosage: SHE STATED SHE HAS REDUCED IT TO HALF A TABLET IN MORNING AND ANOTHER HALF AT NIGHT.
  4. DILT [Concomitant]
     Indication: Blood pressure measurement
  5. ATORVASTATIN [Concomitant]
     Active Substance: ATORVASTATIN
  6. VITAMIN D [Concomitant]
     Active Substance: VITAMIN D NOS
  7. OXCARBAZEPINE [Concomitant]
     Active Substance: OXCARBAZEPINE
     Indication: Trigeminal neuralgia
     Dosage: OXCARBAZEPINE HALF TABLET TWICE A DAY FOR FACIAL NEUROLOGY.
  8. BETAHISTINE [Concomitant]
     Active Substance: BETAHISTINE
     Indication: Vertigo
     Dosage: ONE IN MORNING AND ONE AT NIGHT

REACTIONS (2)
  - Eye irritation [Unknown]
  - Product packaging quantity issue [Unknown]
